FAERS Safety Report 5400382-8 (Version None)
Quarter: 2007Q3

REPORT INFORMATION
  Report Type: 
  Country: None (occurrence: None)
  Receive Date: 20070730
  Receipt Date: 20070723
  Transmission Date: 20080115
  Serious: Yes (Death, Other)
  Sender: FDA-Public Use
  Company Number: B0476556A

PATIENT
  Age: 1 Year
  Sex: Female
  Weight: 8.4 kg

DRUGS (6)
  1. ZIDOVUDINE [Suspect]
     Indication: HIV INFECTION
     Dosage: 70MG TWICE PER DAY
     Route: 048
     Dates: start: 20070514, end: 20070612
  2. LAMIVUDINE [Suspect]
     Indication: HIV INFECTION
     Dosage: 30MG TWICE PER DAY
     Route: 048
     Dates: start: 20070514, end: 20070612
  3. KALETRA [Suspect]
     Indication: HIV INFECTION
     Dosage: 120MG TWICE PER DAY
     Route: 048
     Dates: start: 20070514, end: 20070612
  4. AUGMENTIN '125' [Concomitant]
  5. N/SALINE [Concomitant]
  6. PANADO [Concomitant]

REACTIONS (2)
  - CHEST DISCOMFORT [None]
  - PNEUMONIA [None]
